FAERS Safety Report 5114263-0 (Version None)
Quarter: 2006Q3

REPORT INFORMATION
  Report Type: 
  Country: None (occurrence: None)
  Receive Date: 20060802
  Receipt Date: 20060407
  Transmission Date: 20061208
  Serious: No
  Sender: FDA-Public Use
  Company Number: 200515245US

PATIENT
  Age: 27 Year
  Sex: Female
  Weight: 63.6 kg

DRUGS (1)
  1. KETEK [Suspect]
     Indication: SINUSITIS
     Dosage: 822 MG/DAY
     Dates: start: 20050617, end: 20050618

REACTIONS (7)
  - DIPLOPIA [None]
  - DISCOMFORT [None]
  - DIZZINESS [None]
  - NAUSEA [None]
  - PHOTOPSIA [None]
  - VISION BLURRED [None]
  - VISUAL BRIGHTNESS [None]
